FAERS Safety Report 10597561 (Version 1)
Quarter: 2014Q4

REPORT INFORMATION
  Report Type: Spontaneous
  Country: US (occurrence: None)
  Receive Date: 20141120
  Receipt Date: 20141120
  Transmission Date: 20150529
  Serious: Yes (Other)
  Sender: FDA-Public Use
  Company Number: None

PATIENT
  Sex: Female

DRUGS (1)
  1. CAPECITABINE 500 MG TEVA PHARMACEUTICALS USA INC [Suspect]
     Active Substance: CAPECITABINE
     Indication: NEOPLASM
     Dosage: 3 TABLETS  BID  ORAL
     Route: 048
     Dates: start: 20141008, end: 20141104

REACTIONS (4)
  - Nausea [None]
  - Erythema [None]
  - Diarrhoea [None]
  - Blister [None]
